FAERS Safety Report 13570917 (Version 1)
Quarter: 2017Q2

REPORT INFORMATION
  Report Type: Other
  Country: US (occurrence: US)
  Receive Date: 20170523
  Receipt Date: 20170523
  Transmission Date: 20170830
  Serious: Yes (Other)
  Sender: FDA-Public Use
  Company Number: US-HETERO LABS LTD-2021081

PATIENT
  Age: 40 Year
  Sex: Male

DRUGS (2)
  1. ATAZANAVIR [Suspect]
     Active Substance: ATAZANAVIR
     Route: 065
  2. EMTRICITABINE\TENOFOVIR. [Suspect]
     Active Substance: EMTRICITABINE\TENOFOVIR
     Indication: HIV INFECTION
     Route: 065

REACTIONS (1)
  - Neutropenia [Unknown]
